FAERS Safety Report 17230526 (Version 2)
Quarter: 2020Q1

REPORT INFORMATION
  Report Type: Report from Study
  Country: JP (occurrence: JP)
  Receive Date: 20200103
  Receipt Date: 20200310
  Transmission Date: 20200409
  Serious: Yes (Hospitalization, Other)
  Sender: FDA-Public Use
  Company Number: JP-ASTRAZENECA-2019SF92110

PATIENT
  Age: 62 Year
  Sex: Male
  Weight: 47 kg

DRUGS (14)
  1. LOXOPROFEN [Suspect]
     Active Substance: LOXOPROFEN
     Indication: PYREXIA
     Route: 048
     Dates: start: 20190706
  2. ISONIAZID. [Suspect]
     Active Substance: ISONIAZID
     Indication: MENINGITIS TUBERCULOUS
     Route: 048
     Dates: start: 20190903, end: 20190924
  3. IMFINZI [Suspect]
     Active Substance: DURVALUMAB
     Indication: NON-SMALL CELL LUNG CANCER
     Route: 041
     Dates: start: 20190312, end: 20190807
  4. ESANBUTOL [Suspect]
     Active Substance: ETHAMBUTOL HYDROCHLORIDE
     Indication: MENINGITIS
     Route: 048
     Dates: start: 20190906, end: 20190906
  5. REBAMIPIDE [Suspect]
     Active Substance: REBAMIPIDE
     Indication: PYREXIA
     Route: 048
     Dates: start: 20190710, end: 20190723
  6. LOXOPROFEN [Suspect]
     Active Substance: LOXOPROFEN
     Indication: PYREXIA
     Route: 048
     Dates: start: 20190710, end: 20190723
  7. REBAMIPIDE [Suspect]
     Active Substance: REBAMIPIDE
     Indication: PYREXIA
     Route: 048
     Dates: start: 20190724
  8. ESANBUTOL [Suspect]
     Active Substance: ETHAMBUTOL HYDROCHLORIDE
     Indication: MENINGITIS
     Route: 048
     Dates: start: 20191104, end: 20200209
  9. LEVOFLOXACIN HEMIHYDRATE [Suspect]
     Active Substance: LEVOFLOXACIN
     Route: 048
     Dates: start: 20191104, end: 20200209
  10. LOXOPROFEN [Suspect]
     Active Substance: LOXOPROFEN
     Indication: PYREXIA
     Route: 048
     Dates: start: 20190724, end: 20190905
  11. RIFAMPICIN [Suspect]
     Active Substance: RIFAMPIN
     Indication: MENINGITIS TUBERCULOUS
     Route: 048
     Dates: start: 20190903, end: 20190924
  12. RIFAMPICIN [Suspect]
     Active Substance: RIFAMPIN
     Indication: MENINGITIS TUBERCULOUS
     Route: 048
     Dates: start: 20191104
  13. ISONIAZID. [Suspect]
     Active Substance: ISONIAZID
     Indication: MENINGITIS TUBERCULOUS
     Route: 048
     Dates: start: 20191104, end: 20191211
  14. ISONIAZID. [Suspect]
     Active Substance: ISONIAZID
     Indication: MENINGITIS TUBERCULOUS
     Route: 048
     Dates: start: 20191212

REACTIONS (7)
  - Metastases to central nervous system [Unknown]
  - Inappropriate antidiuretic hormone secretion [Recovered/Resolved]
  - Decreased appetite [Unknown]
  - Meningitis tuberculous [Recovering/Resolving]
  - Monoparesis [Unknown]
  - Hepatic function abnormal [Recovering/Resolving]
  - Radiation pneumonitis [Recovering/Resolving]

NARRATIVE: CASE EVENT DATE: 20190424
